FAERS Safety Report 7761379-6 (Version None)
Quarter: 2011Q3

REPORT INFORMATION
  Report Type: 
  Country: None (occurrence: None)
  Receive Date: 20110920
  Receipt Date: 20110914
  Transmission Date: 20111222
  Serious: No
  Sender: FDA-Public Use
  Company Number: US-PFIZER INC-2011218277

PATIENT
  Sex: Male

DRUGS (5)
  1. PRISTIQ [Suspect]
     Dosage: 50 MG, FREQUENCY UNSPECIFIED
     Dates: start: 20110101, end: 20110101
  2. PRISTIQ [Suspect]
     Dosage: 25 MG , FREQUENCY UNSPECIFIED
     Dates: start: 20110101, end: 20110101
  3. PRISTIQ [Suspect]
     Dosage: 25 MG, FREQUENCY UNSPECIFIED
     Dates: start: 20110101, end: 20110101
  4. LEXAPRO [Concomitant]
     Dosage: 20 MG, FREQUENCY UNSPEICFIED
  5. PRISTIQ [Suspect]
     Dosage: 50 MG, FREQUENCY UNSPECIFIED
     Dates: start: 20110101, end: 20110101

REACTIONS (3)
  - DIARRHOEA [None]
  - HYPERHIDROSIS [None]
  - WRONG TECHNIQUE IN DRUG USAGE PROCESS [None]
